FAERS Safety Report 25679784 (Version 1)
Quarter: 2025Q3

REPORT INFORMATION
  Report Type: Spontaneous
  Country: EU (occurrence: EU)
  Receive Date: 20250814
  Receipt Date: 20250814
  Transmission Date: 20251021
  Serious: Yes (Hospitalization, Disabling, Other)
  Sender: AUROBINDO
  Company Number: EU-EMA-20141226-pdevhumanwt-115132017

PATIENT
  Age: 60 Year
  Sex: Male
  Weight: 115 kg

DRUGS (6)
  1. DOCETAXEL [Suspect]
     Active Substance: DOCETAXEL
     Indication: Prostate cancer metastatic
     Route: 065
  2. BICALUTAMIDE [Suspect]
     Active Substance: BICALUTAMIDE
     Indication: Prostate cancer metastatic
     Route: 065
  3. CABAZITAXEL [Suspect]
     Active Substance: CABAZITAXEL
     Indication: Chemotherapy
     Route: 065
     Dates: start: 20120401, end: 20120801
  4. CABAZITAXEL [Suspect]
     Active Substance: CABAZITAXEL
     Indication: Prostate cancer metastatic
  5. PREDNISONE [Suspect]
     Active Substance: PREDNISONE
     Indication: Prostate cancer metastatic
     Dosage: 12.5 MILLIGRAM, ONCE A DAY
     Route: 065
     Dates: start: 20110401, end: 20120801
  6. PREDNISONE [Suspect]
     Active Substance: PREDNISONE
     Indication: Prophylaxis

REACTIONS (15)
  - Idiopathic intracranial hypertension [Recovered/Resolved]
  - Metastases to bone [Unknown]
  - Intracranial pressure increased [Unknown]
  - Disease progression [Recovered/Resolved]
  - Weight increased [Recovered/Resolved]
  - Tinnitus [Recovered/Resolved]
  - Eye pain [Unknown]
  - Photophobia [Recovered/Resolved]
  - Visual impairment [Recovered/Resolved]
  - Fluid retention [Unknown]
  - Blindness [Unknown]
  - Papilloedema [Unknown]
  - Brain herniation [Unknown]
  - Exophthalmos [Unknown]
  - Prostatic specific antigen increased [Unknown]

NARRATIVE: CASE EVENT DATE: 20120801
